FAERS Safety Report 9217761 (Version 1)
Quarter: 2013Q2

REPORT INFORMATION
  Report Type: Report from Study
  Country: US (occurrence: US)
  Receive Date: 20130408
  Receipt Date: 20130408
  Transmission Date: 20140414
  Serious: Yes (Hospitalization, Other)
  Sender: FDA-Public Use
  Company Number: US-ABBOTT-13P-163-1070715-00

PATIENT
  Age: 56 Year
  Sex: Male
  Weight: 118.04 kg

DRUGS (12)
  1. HUMIRA [Suspect]
     Indication: RHEUMATOID ARTHRITIS
     Dates: start: 2008, end: 201301
  2. HUMIRA [Suspect]
     Indication: RHEUMATOID ARTHRITIS
     Dates: start: 201301, end: 201303
  3. METHOTREXATE [Suspect]
     Indication: RHEUMATOID ARTHRITIS
     Dates: end: 201303
  4. DICLOFEX [Concomitant]
     Indication: RHEUMATOID ARTHRITIS
  5. FUROSEMIDE [Concomitant]
     Indication: FLUID RETENTION
  6. PHENTERMINE [Concomitant]
     Indication: WEIGHT CONTROL
     Dates: start: 2012
  7. FINASTERIDE [Concomitant]
     Indication: BENIGN PROSTATIC HYPERPLASIA
  8. SINGULAIR [Concomitant]
     Indication: SEASONAL ALLERGY
     Dosage: IN AUGUST AND SPRING
  9. ALBUTEROL [Concomitant]
     Indication: HYPERSENSITIVITY
     Route: 055
  10. CEPHALEXIN [Concomitant]
     Indication: CELLULITIS
  11. PREDNISONE [Concomitant]
     Indication: RHEUMATOID ARTHRITIS
  12. MAXIDE [Concomitant]
     Indication: FLUID RETENTION

REACTIONS (13)
  - Ligament rupture [Recovered/Resolved]
  - Pyrexia [Recovered/Resolved]
  - Abdominal pain upper [Recovered/Resolved]
  - Cellulitis [Recovered/Resolved]
  - Cellulitis [Recovered/Resolved]
  - Joint range of motion decreased [Unknown]
  - Rotator cuff syndrome [Not Recovered/Not Resolved]
  - Nuclear magnetic resonance imaging abnormal [Unknown]
  - Non-Hodgkin^s lymphoma [Not Recovered/Not Resolved]
  - Bone disorder [Not Recovered/Not Resolved]
  - Musculoskeletal pain [Not Recovered/Not Resolved]
  - Skin fissures [Unknown]
  - Localised infection [Unknown]
